FAERS Safety Report 25618988 (Version 2)
Quarter: 2025Q4

REPORT INFORMATION
  Report Type: Report from Study
  Country: US (occurrence: US)
  Receive Date: 20250729
  Receipt Date: 20251003
  Transmission Date: 20260117
  Serious: Yes (Hospitalization, Disabling)
  Sender: ARGENX BVBA
  Company Number: US-ARGENX-2025-ARGX-US009806

PATIENT

DRUGS (2)
  1. VYVGART HYTRULO [Suspect]
     Active Substance: EFGARTIGIMOD ALFA\HYALURONIDASE-QVFC
     Indication: Chronic inflammatory demyelinating polyradiculoneuropathy
     Dosage: 1000 MG / 10000 UNITS INJECT ONE SYRINGE, 1/WEEK
     Route: 058
     Dates: start: 20250710
  2. EPINEPHRINE [Concomitant]
     Active Substance: EPINEPHRINE
     Indication: Product used for unknown indication
     Dosage: AUTO INJECTOR
     Route: 065

REACTIONS (2)
  - Motor dysfunction [Unknown]
  - Throat tightness [Unknown]

NARRATIVE: CASE EVENT DATE: 20250701
